FAERS Safety Report 24822731 (Version 2)
Quarter: 2025Q1

REPORT INFORMATION
  Report Type: Report from Study
  Country: FR (occurrence: FR)
  Receive Date: 20250109
  Receipt Date: 20250306
  Transmission Date: 20250409
  Serious: Yes (Other)
  Sender: AUROBINDO
  Company Number: FR-009507513-1801FRA003890

PATIENT

DRUGS (4)
  1. RIBAVIRIN [Suspect]
     Active Substance: RIBAVIRIN
     Indication: Hepatitis C
     Dosage: 1000 MILLIGRAM, ONCE A DAY (1000 MG DAILY ({75 KG) OR 1200 MG DAILY (}= 75 KG) FOR 24 WEEKS)
     Route: 048
  2. PEGINTERFERON ALFA-2A [Suspect]
     Active Substance: PEGINTERFERON ALFA-2A
     Indication: Hepatitis C
     Dosage: 180 MICROGRAM, EVERY WEEK
     Route: 058
  3. ASUNAPREVIR [Suspect]
     Active Substance: ASUNAPREVIR
     Indication: Hepatitis C
     Dosage: 200 MILLIGRAM, ONCE A DAY
     Route: 065
  4. DACLATASVIR [Suspect]
     Active Substance: DACLATASVIR
     Indication: Hepatitis C
     Dosage: 60 MILLIGRAM, ONCE A DAY
     Route: 065

REACTIONS (1)
  - Alanine aminotransferase increased [Unknown]
